FAERS Safety Report 5981636-3 (Version None)
Quarter: 2008Q4

REPORT INFORMATION
  Report Type: 
  Country: None (occurrence: None)
  Receive Date: 20081205
  Receipt Date: 20081124
  Transmission Date: 20090506
  Serious: Yes (Hospitalization, Other)
  Sender: FDA-Public Use
  Company Number: US-BAXTER-2008BH013048

PATIENT
  Sex: Female

DRUGS (1)
  1. HEPARIN SODIUM INJECTION [Suspect]
     Indication: THROMBOSIS PROPHYLAXIS
     Route: 065
     Dates: start: 20071001, end: 20070101

REACTIONS (5)
  - ADVERSE EVENT [None]
  - CEREBROVASCULAR ACCIDENT [None]
  - COMA [None]
  - LIMB TRAUMATIC AMPUTATION [None]
  - SCAR [None]
